FAERS Safety Report 4947117-0 (Version None)
Quarter: 2006Q1

REPORT INFORMATION
  Report Type: 
  Country: None (occurrence: None)
  Receive Date: 20060314
  Receipt Date: 20060221
  Transmission Date: 20060701
  Serious: Yes (Other)
  Sender: FDA-Public Use
  Company Number: US200602004354

PATIENT
  Age: 64 Year
  Sex: Female

DRUGS (3)
  1. FORTEO [Suspect]
     Indication: OSTEOPOROSIS
     Dosage: (1/D)
     Dates: start: 20051101, end: 20051201
  2. FORTEO [Suspect]
     Indication: OSTEOPOROSIS
     Dosage: (1/D)
     Dates: start: 20060201
  3. FORTEO [Concomitant]

REACTIONS (5)
  - BONE PAIN [None]
  - ECONOMIC PROBLEM [None]
  - OSTEOCHONDROMA [None]
  - PHARMACEUTICAL PRODUCT COMPLAINT [None]
  - TREATMENT NONCOMPLIANCE [None]
